FAERS Safety Report 11636937 (Version 1)
Quarter: 2015Q4

REPORT INFORMATION
  Report Type: Spontaneous
  Country: US (occurrence: None)
  Receive Date: 20151015
  Receipt Date: 20151015
  Transmission Date: 20160304
  Serious: Yes (Hospitalization)
  Sender: FDA-Public Use
  Company Number: None

PATIENT
  Sex: Male

DRUGS (1)
  1. HARVONI [Suspect]
     Active Substance: LEDIPASVIR\SOFOSBUVIR
     Indication: CHRONIC HEPATITIS C
     Dosage: 40MG/900MG  QD ORAL
     Route: 048
     Dates: start: 20150524

REACTIONS (6)
  - Metabolic acidosis [None]
  - Acute kidney injury [None]
  - Urinary tract infection [None]
  - Encephalopathy [None]
  - Dehydration [None]
  - Dysphagia [None]

NARRATIVE: CASE EVENT DATE: 20150713
